FAERS Safety Report 7884284-3 (Version None)
Quarter: 2011Q4

REPORT INFORMATION
  Report Type: 
  Country: None (occurrence: None)
  Receive Date: 20111102
  Receipt Date: 20111025
  Transmission Date: 20120403
  Serious: No
  Sender: FDA-Public Use
  Company Number: US-PFIZER INC-2011224281

PATIENT
  Age: 79 Year
  Sex: Female

DRUGS (4)
  1. SUTENT [Suspect]
     Dosage: 50 (NO UNITS REPORTED)
  2. SUTENT [Suspect]
     Dosage: 25 (NO UNITS REPORTED)
  3. SUTENT [Suspect]
     Dosage: 25 (NO UNITS REPORTED)
  4. SUTENT [Suspect]
     Indication: PANCREATIC NEUROENDOCRINE TUMOUR METASTATIC
     Dosage: 37.5 MG, 1X/DAY
     Route: 048
     Dates: start: 20110208

REACTIONS (1)
  - FATIGUE [None]
